FAERS Safety Report 24934436 (Version 1)
Quarter: 2025Q1

REPORT INFORMATION
  Report Type: Report from Study
  Country: US (occurrence: US)
  Receive Date: 20250206
  Receipt Date: 20250206
  Transmission Date: 20250409
  Serious: No
  Sender: EXELIXIS
  Company Number: US-EXELIXIS-EXL-2024-002263

PATIENT
  Sex: Male
  Weight: 120.18 kg

DRUGS (1)
  1. CABOMETYX [Suspect]
     Active Substance: CABOZANTINIB S-MALATE
     Indication: Renal cancer
     Dosage: 60 MG, QD
     Dates: end: 20241115

REACTIONS (11)
  - Ear pain [Unknown]
  - Speech disorder [Unknown]
  - Dysphagia [Unknown]
  - Oropharyngeal pain [Unknown]
  - Glossitis [Unknown]
  - Diarrhoea [Recovered/Resolved]
  - Epistaxis [Unknown]
  - Fatigue [Unknown]
  - Stomatitis [Unknown]
  - Dry mouth [Unknown]
  - Headache [Unknown]
